FAERS Safety Report 18768820 (Version 6)
Quarter: 2025Q2

REPORT INFORMATION
  Report Type: Report from Study
  Country: US (occurrence: US)
  Receive Date: 20210121
  Receipt Date: 20250612
  Transmission Date: 20250717
  Serious: Yes (Hospitalization, Other)
  Sender: TAKEDA
  Company Number: US-TAKEDA-2021TUS001892

PATIENT
  Age: 80 Year
  Sex: Male
  Weight: 72.1 kg

DRUGS (23)
  1. HUMAN IMMUNOGLOBULIN G\HYALURONIDASE RECOMBINANT HUMAN [Suspect]
     Active Substance: HUMAN IMMUNOGLOBULIN G\HYALURONIDASE (HUMAN RECOMBINANT)
     Indication: Immunodeficiency common variable
     Dosage: 37.5 GRAM, Q4WEEKS
     Dates: start: 20191216
  2. HUMAN IMMUNOGLOBULIN G\HYALURONIDASE RECOMBINANT HUMAN [Suspect]
     Active Substance: HUMAN IMMUNOGLOBULIN G\HYALURONIDASE (HUMAN RECOMBINANT)
     Dosage: 30 GRAM, Q4WEEKS
     Dates: start: 202001
  3. HUMAN IMMUNOGLOBULIN G\HYALURONIDASE RECOMBINANT HUMAN [Suspect]
     Active Substance: HUMAN IMMUNOGLOBULIN G\HYALURONIDASE (HUMAN RECOMBINANT)
     Dosage: 37.5 GRAM, Q4WEEKS
  4. CLOPIDOGREL [Concomitant]
     Active Substance: CLOPIDOGREL BISULFATE
  5. CRESTOR [Concomitant]
     Active Substance: ROSUVASTATIN CALCIUM
  6. METOPROLOL [Concomitant]
     Active Substance: METOPROLOL
  7. FUROSEMIDE [Concomitant]
     Active Substance: FUROSEMIDE
  8. SODIUM CHLORIDE [Concomitant]
     Active Substance: SODIUM CHLORIDE
  9. EPINEPHRINE [Concomitant]
     Active Substance: EPINEPHRINE
  10. ACETAMINOPHEN [Concomitant]
     Active Substance: ACETAMINOPHEN
  11. METOPROLOL TARTRATE [Concomitant]
     Active Substance: METOPROLOL TARTRATE
  12. CORLANOR [Concomitant]
     Active Substance: IVABRADINE HYDROCHLORIDE
  13. LIDOCAINE [Concomitant]
     Active Substance: LIDOCAINE
  14. FAMOTIDINE [Concomitant]
     Active Substance: FAMOTIDINE
  15. SACCHAROMYCES CEREVISIAE [Concomitant]
     Active Substance: SACCHAROMYCES CEREVISIAE
  16. AMIODARONE HYDROCHLORIDE [Concomitant]
     Active Substance: AMIODARONE HYDROCHLORIDE
  17. ASPIRIN [Concomitant]
     Active Substance: ASPIRIN
  18. MONTELUKAST SODIUM [Concomitant]
     Active Substance: MONTELUKAST SODIUM
  19. DIPHENHYDRAMINE HYDROCHLORIDE [Concomitant]
     Active Substance: DIPHENHYDRAMINE HYDROCHLORIDE
  20. TRIAMCINOLONE ACETONIDE [Concomitant]
     Active Substance: TRIAMCINOLONE ACETONIDE
  21. LEVOTHYROXINE SODIUM [Concomitant]
     Active Substance: LEVOTHYROXINE SODIUM
  22. DOXYCYCLINE HYCLATE [Concomitant]
     Active Substance: DOXYCYCLINE HYCLATE
  23. FERROUS SULFATE [Concomitant]
     Active Substance: FERROUS SULFATE

REACTIONS (12)
  - Hyperthyroidism [Unknown]
  - Pneumonia [Unknown]
  - Pain [Recovered/Resolved]
  - Pruritus [Recovered/Resolved]
  - Infusion related reaction [Unknown]
  - Respiratory symptom [Unknown]
  - Skin abrasion [Unknown]
  - Contusion [Unknown]
  - Fall [Unknown]
  - Chest pain [Unknown]
  - Swelling [Unknown]
  - Headache [Unknown]

NARRATIVE: CASE EVENT DATE: 20210201
